FAERS Safety Report 17959065 (Version 4)
Quarter: 2020Q3

REPORT INFORMATION
  Report Type: Report from Study
  Country: NL (occurrence: NL)
  Receive Date: 20200629
  Receipt Date: 20200729
  Transmission Date: 20201103
  Serious: Yes (Other)
  Sender: FDA-Public Use
  Company Number: NL-MYLANLABS-2019M1115097

PATIENT
  Sex: Female

DRUGS (1)
  1. GLATIRAMEERACETAAT MYLAN 40 MG/ML [Suspect]
     Active Substance: GLATIRAMER ACETATE
     Indication: RELAPSING MULTIPLE SCLEROSIS
     Dosage: 40 MILLIGRAM, 3XW (3.00 X PER WEEK)
     Route: 058

REACTIONS (11)
  - Incorrect dose administered [Unknown]
  - Skin irritation [Recovering/Resolving]
  - Injection site mass [Not Recovered/Not Resolved]
  - Cataract [Unknown]
  - Injection site induration [Not Recovered/Not Resolved]
  - Visual impairment [Recovered/Resolved]
  - Weight fluctuation [Unknown]
  - Intentional product misuse [Not Recovered/Not Resolved]
  - Diarrhoea [Not Recovered/Not Resolved]
  - Injection site vesicles [Not Recovered/Not Resolved]
  - Injection site erythema [Not Recovered/Not Resolved]
